FAERS Safety Report 11488187 (Version 1)
Quarter: 2015Q3

REPORT INFORMATION
  Report Type: Spontaneous
  Country: US (occurrence: US)
  Receive Date: 20150910
  Receipt Date: 20150910
  Transmission Date: 20151125
  Serious: No
  Sender: FDA-Public Use
  Company Number: US-BAYER-2015-415966

PATIENT
  Age: 74 Year
  Sex: Male

DRUGS (3)
  1. MIRALAX [Suspect]
     Active Substance: POLYETHYLENE GLYCOL 3350
     Indication: CONSTIPATION
     Dosage: 1 DF, QD
     Route: 048
     Dates: start: 20150731
  2. ORNITHINE [Concomitant]
     Active Substance: ORNITHINE
     Indication: HYPERTENSION
  3. ORNITHINE [Concomitant]
     Active Substance: ORNITHINE
     Indication: PROSTATIC DISORDER
     Dosage: UNK
     Route: 048

REACTIONS (1)
  - Drug ineffective [None]

NARRATIVE: CASE EVENT DATE: 20150903
